FAERS Safety Report 5792385-9 (Version None)
Quarter: 2008Q2

REPORT INFORMATION
  Report Type: 
  Country: None (occurrence: None)
  Receive Date: 20080626
  Receipt Date: 20080619
  Transmission Date: 20081010
  Serious: Yes (Disabling)
  Sender: FDA-Public Use
  Company Number: GB-ABBOTT-08P-167-0459092-00

PATIENT
  Age: 77 Year
  Sex: Male
  Weight: 70.6 kg

DRUGS (7)
  1. IBUPROFEN [Suspect]
     Indication: DRUG USE FOR UNKNOWN INDICATION
     Dates: start: 20080401
  2. ENTACAPONE [Suspect]
     Indication: PARKINSON'S DISEASE
  3. CLOPIDOGREL [Suspect]
     Indication: ATRIAL FIBRILLATION
     Dates: start: 20080317, end: 20080417
  4. ROPINIROLE [Concomitant]
     Indication: PARKINSON'S DISEASE
  5. MADOPAR [Concomitant]
     Indication: PARKINSON'S DISEASE
  6. MADOPAR [Concomitant]
  7. ASPIRIN [Concomitant]
     Indication: DRUG USE FOR UNKNOWN INDICATION

REACTIONS (3)
  - CONFUSIONAL STATE [None]
  - DRUG INTERACTION [None]
  - HALLUCINATION, VISUAL [None]
